FAERS Safety Report 6510294-4 (Version None)
Quarter: 2009Q4

REPORT INFORMATION
  Report Type: 
  Country: None (occurrence: None)
  Receive Date: 20091222
  Receipt Date: 20090826
  Transmission Date: 20100525
  Serious: No
  Sender: FDA-Public Use
  Company Number: US-ASTRAZENECA-2009SE17300

PATIENT
  Age: 17720 Day
  Sex: Male
  Weight: 122.5 kg

DRUGS (2)
  1. ROSUVASTATIN [Suspect]
     Route: 048
     Dates: start: 20090822
  2. NIASPAN [Suspect]
     Route: 048
     Dates: start: 20090822

REACTIONS (1)
  - SOMNOLENCE [None]
